FAERS Safety Report 7722053-5 (Version None)
Quarter: 2011Q3

REPORT INFORMATION
  Report Type: 
  Country: None (occurrence: None)
  Receive Date: 20110831
  Receipt Date: 20110823
  Transmission Date: 20111222
  Serious: Yes (Other)
  Sender: FDA-Public Use
  Company Number: DE-GENZYME-THYR-1000534

PATIENT
  Age: 49 Year
  Sex: Female
  Weight: 62 kg

DRUGS (4)
  1. LEVOTHYROXINE SODIUM [Concomitant]
     Indication: PRODUCT USED FOR UNKNOWN INDICATION
     Dosage: 225 MCG, QD
  2. THYROGEN [Suspect]
     Indication: DIAGNOSTIC PROCEDURE
     Dosage: 1 ML, ONCE
     Route: 030
     Dates: start: 20110704
  3. IODINE (131 I) [Concomitant]
     Indication: THYROID CANCER
     Dosage: UNK
     Route: 065
     Dates: start: 20101101, end: 20101101
  4. IODINE (131 I) [Concomitant]
     Dosage: UNK
     Dates: start: 20110201, end: 20110201

REACTIONS (7)
  - INJECTION SITE PRURITUS [None]
  - DIZZINESS [None]
  - ASTHENIA [None]
  - HYPERHIDROSIS [None]
  - NAUSEA [None]
  - DRUG ADMINISTERED AT INAPPROPRIATE SITE [None]
  - FATIGUE [None]
